FAERS Safety Report 8015524-8 (Version None)
Quarter: 2011Q4

REPORT INFORMATION
  Report Type: 
  Country: None (occurrence: None)
  Receive Date: 20111230
  Receipt Date: 20111226
  Transmission Date: 20120403
  Serious: Yes (Death, Other)
  Sender: FDA-Public Use
  Company Number: JP-BAYER-201014221BYL

PATIENT
  Age: 59 Year
  Sex: Male

DRUGS (5)
  1. ALLEGRA [Concomitant]
     Indication: RHINITIS
     Dosage: 120 MG, QD
     Route: 048
  2. LOXONIN [Concomitant]
     Indication: METASTATIC PAIN
     Dosage: 180 MG, QD
     Route: 048
  3. CYTOTEC [Concomitant]
     Indication: PROPHYLAXIS AGAINST GASTROINTESTINAL ULCER
     Dosage: 600 MG, QD
     Route: 048
  4. RABEPRAZOLE SODIUM [Concomitant]
     Indication: GASTRITIS
     Dosage: 10 MG, QD
     Route: 048
  5. NEXAVAR [Suspect]
     Indication: HEPATIC NEOPLASM MALIGNANT
     Dosage: 600 MG, QD
     Route: 048
     Dates: start: 20100610, end: 20100818

REACTIONS (7)
  - RENAL IMPAIRMENT [None]
  - HEPATIC ENCEPHALOPATHY [None]
  - HYPERKALAEMIA [None]
  - INTERSTITIAL LUNG DISEASE [None]
  - ASCITES [None]
  - HEPATIC NEOPLASM MALIGNANT [None]
  - DYSPNOEA [None]
